FAERS Safety Report 6399661-X (Version None)
Quarter: 2009Q4

REPORT INFORMATION
  Report Type: 
  Country: None (occurrence: None)
  Receive Date: 20091014
  Receipt Date: 20090918
  Transmission Date: 20100525
  Serious: No
  Sender: FDA-Public Use
  Company Number: BR-ROCHE-658746

PATIENT
  Sex: Female
  Weight: 4 kg

DRUGS (1)
  1. TAMIFLU [Suspect]
     Route: 064
     Dates: start: 20090801

REACTIONS (2)
  - NO ADVERSE EVENT [None]
  - NORMAL NEWBORN [None]
